FAERS Safety Report 6335132-4 (Version None)
Quarter: 2009Q3

REPORT INFORMATION
  Report Type: 
  Country: None (occurrence: None)
  Receive Date: 20090828
  Receipt Date: 20090828
  Transmission Date: 20100115
  Serious: Yes (Hospitalization)
  Sender: FDA-Public Use
  Company Number: None

PATIENT
  Age: 83 Year
  Sex: Female
  Weight: 54.4316 kg

DRUGS (1)
  1. PLAVIX [Suspect]
     Indication: POSTOPERATIVE CARE
     Dosage: 1 A DAY ORAL
     Route: 048
     Dates: start: 20090718, end: 20090721

REACTIONS (1)
  - HAEMORRHAGE [None]
